FAERS Safety Report 4961651-9 (Version None)
Quarter: 2006Q1

REPORT INFORMATION
  Report Type: 
  Country: None (occurrence: None)
  Receive Date: 20060329
  Receipt Date: 20060316
  Transmission Date: 20060701
  Serious: Yes (Death)
  Sender: FDA-Public Use
  Company Number: 2006JP000497

PATIENT
  Age: 51 Year
  Sex: Male

DRUGS (3)
  1. PROGRAF [Suspect]
     Indication: BONE MARROW TRANSPLANT
     Dates: start: 20041201
  2. METHOTREXATE [Concomitant]
  3. METHYLPREDNISOLONE [Concomitant]

REACTIONS (7)
  - ASTHENIA [None]
  - CELLULITIS [None]
  - CEREBRAL INFARCTION [None]
  - CYTOMEGALOVIRUS VIRAEMIA [None]
  - GRAFT VERSUS HOST DISEASE [None]
  - HEADACHE [None]
  - MUCORMYCOSIS [None]
